FAERS Safety Report 9422456 (Version 1)
Quarter: 2013Q3

REPORT INFORMATION
  Report Type: Spontaneous
  Country: DK (occurrence: DK)
  Receive Date: 20130726
  Receipt Date: 20130726
  Transmission Date: 20140515
  Serious: Yes (Life-Threatening)
  Sender: FDA-Public Use
  Company Number: DK-NOVOPROD-383528

PATIENT
  Age: 29 Year
  Sex: Male
  Weight: 68 kg

DRUGS (3)
  1. NOVORAPID FLEXPEN [Suspect]
     Indication: TYPE 1 DIABETES MELLITUS
     Dosage: 10 IE I GIK-INFUSION. UNTIL THEN GIVEN 210 IE
     Route: 042
     Dates: start: 20130702, end: 20130703
  2. PINEX                              /00020001/ [Concomitant]
     Indication: HEADACHE
     Dates: start: 20130702
  3. ALMINOX                            /06359301/ [Concomitant]
     Indication: GASTROOESOPHAGEAL REFLUX DISEASE
     Dosage: UNK
     Dates: start: 20130703

REACTIONS (4)
  - Flushing [Recovered/Resolved]
  - Cough [Recovered/Resolved]
  - Chest discomfort [Recovered/Resolved]
  - Hypersensitivity [Recovered/Resolved]
